FAERS Safety Report 12264982 (Version 1)
Quarter: 2016Q2

REPORT INFORMATION
  Report Type: Spontaneous
  Country: US (occurrence: US)
  Receive Date: 20160413
  Receipt Date: 20160413
  Transmission Date: 20160815
  Serious: No
  Sender: FDA-Public Use
  Company Number: US-JNJFOC-20160312858

PATIENT
  Sex: Female

DRUGS (9)
  1. CHILDRENS TYLENOL [Suspect]
     Active Substance: ACETAMINOPHEN
     Indication: PYREXIA
     Dosage: DOSING WAS ALTERNATED WITH CHILDREN^S MOTRIN.
     Route: 048
     Dates: start: 201602
  2. CHILDRENS TYLENOL [Suspect]
     Active Substance: ACETAMINOPHEN
     Indication: SKIN DISCOLOURATION
     Dosage: DOSING WAS ALTERNATED WITH CHILDREN^S MOTRIN.
     Route: 048
     Dates: start: 201602
  3. CHILDRENS MOTRIN [Concomitant]
     Active Substance: IBUPROFEN
     Indication: PYREXIA
     Route: 048
     Dates: start: 20160307
  4. CHILDRENS MOTRIN [Concomitant]
     Active Substance: IBUPROFEN
     Indication: PYREXIA
     Route: 048
     Dates: start: 201602
  5. CHILDRENS TYLENOL [Suspect]
     Active Substance: ACETAMINOPHEN
     Indication: INFECTION
     Dosage: DOSING WAS ALTERNATED WITH CHILDREN^S MOTRIN.
     Route: 048
     Dates: start: 201602
  6. CHILDRENS MOTRIN [Concomitant]
     Active Substance: IBUPROFEN
     Indication: INFECTION
     Route: 048
     Dates: start: 201602
  7. CHILDRENS MOTRIN [Concomitant]
     Active Substance: IBUPROFEN
     Indication: INFECTION
     Route: 048
     Dates: start: 20160307
  8. CHILDRENS MOTRIN [Concomitant]
     Active Substance: IBUPROFEN
     Indication: SKIN DISCOLOURATION
     Route: 048
     Dates: start: 201602
  9. CHILDRENS MOTRIN [Concomitant]
     Active Substance: IBUPROFEN
     Indication: SKIN DISCOLOURATION
     Route: 048
     Dates: start: 20160307

REACTIONS (3)
  - Drug effect incomplete [Unknown]
  - Product use issue [Unknown]
  - Off label use [Unknown]

NARRATIVE: CASE EVENT DATE: 2016
